FAERS Safety Report 5492101-4 (Version None)
Quarter: 2007Q4

REPORT INFORMATION
  Report Type: 
  Country: None (occurrence: None)
  Receive Date: 20071022
  Receipt Date: 20071012
  Transmission Date: 20080405
  Serious: Yes (Other)
  Sender: FDA-Public Use
  Company Number: HQWYE205517JUL04

PATIENT
  Sex: Female
  Weight: 67.19 kg

DRUGS (1)
  1. PREMARIN [Suspect]
     Indication: HORMONE REPLACEMENT THERAPY
     Dosage: 1.25MG
     Route: 048
     Dates: start: 19900301, end: 19981101

REACTIONS (1)
  - BREAST CANCER METASTATIC [None]
